FAERS Safety Report 6576181-0 (Version None)
Quarter: 2010Q1

REPORT INFORMATION
  Report Type: 
  Country: None (occurrence: None)
  Receive Date: 20100209
  Receipt Date: 20100201
  Transmission Date: 20100710
  Serious: Yes (Hospitalization)
  Sender: FDA-Public Use
  Company Number: DE-MERCK-1002USA00899

PATIENT
  Age: 63 Year
  Sex: Female

DRUGS (9)
  1. PRINIVIL [Suspect]
     Indication: HYPERTENSION
     Route: 048
     Dates: start: 20010101
  2. VALPROIC ACID [Suspect]
     Indication: BIPOLAR DISORDER
     Route: 048
     Dates: start: 20080820, end: 20080911
  3. BECLOMETHASONE DIPROPIONATE AND CLOTRIMAZOLE [Concomitant]
     Route: 065
     Dates: start: 20050101
  4. INFLUENZA VIRUS VACCINE (UNSPECIFIED) [Concomitant]
     Route: 065
     Dates: start: 20080908
  5. PRESOMEN [Suspect]
     Indication: HORMONE REPLACEMENT THERAPY
     Route: 048
     Dates: start: 20040101, end: 20080911
  6. ELAVIL [Suspect]
     Indication: DEPRESSION
     Route: 048
     Dates: start: 20040101, end: 20080819
  7. ASPIRIN [Suspect]
     Indication: CORONARY ARTERY DISEASE
     Route: 048
     Dates: start: 20010101
  8. ZOCOR [Suspect]
     Indication: HYPERLIPIDAEMIA
     Route: 048
     Dates: start: 20000101
  9. BISOPROLOL FUMARATE [Suspect]
     Indication: HYPERTENSION
     Route: 048
     Dates: start: 19950101

REACTIONS (1)
  - HEPATOTOXICITY [None]
